FAERS Safety Report 7445940-4 (Version None)
Quarter: 2011Q2

REPORT INFORMATION
  Report Type: 
  Country: None (occurrence: None)
  Receive Date: 20110429
  Receipt Date: 20100629
  Transmission Date: 20111010
  Serious: No
  Sender: FDA-Public Use
  Company Number: US-ASTRAZENECA-2010SE30339

PATIENT
  Age: 83 Year
  Sex: Female
  Weight: 78.5 kg

DRUGS (7)
  1. NEXIUM [Suspect]
     Indication: GASTROOESOPHAGEAL REFLUX DISEASE
     Route: 048
  2. SPIRONOLACTONE [Concomitant]
  3. CARVEDILOL [Concomitant]
  4. ASPIRIN [Concomitant]
  5. LISINOPRIL [Concomitant]
  6. PRAVASTATIN [Concomitant]
  7. NEXIUM [Suspect]
     Route: 048

REACTIONS (4)
  - DIARRHOEA [None]
  - DYSPEPSIA [None]
  - BODY HEIGHT DECREASED [None]
  - DRUG DOSE OMISSION [None]
